FAERS Safety Report 9258286 (Version 1)
Quarter: 2013Q2

REPORT INFORMATION
  Report Type: Spontaneous
  Country: JP (occurrence: JP)
  Receive Date: 20130426
  Receipt Date: 20130426
  Transmission Date: 20140414
  Serious: Yes (Other)
  Sender: FDA-Public Use
  Company Number: JP-PFIZER INC-2012210296

PATIENT
  Age: 77 Year
  Sex: Male

DRUGS (5)
  1. NORVASC [Suspect]
     Indication: HYPERTENSION
     Dosage: 2.5 MG, DAILY
     Route: 048
  2. CARDENALIN [Suspect]
     Dosage: 1 MG, DAILY
     Route: 048
  3. OMEPRAZOLE [Concomitant]
     Indication: GASTRITIS PROPHYLAXIS
     Dosage: UNK
  4. RENIVACE [Concomitant]
  5. RIZE [Concomitant]

REACTIONS (7)
  - Suicidal ideation [Unknown]
  - Blood creatine phosphokinase increased [Unknown]
  - Muscle spasms [Unknown]
  - Extrasystoles [Unknown]
  - Oropharyngeal pain [Unknown]
  - Depression [Unknown]
  - Asthenia [Unknown]
